FAERS Safety Report 15287795 (Version 1)
Quarter: 2018Q4

REPORT INFORMATION
  Report Type: Spontaneous
  Country: FR (occurrence: FR)
  Receive Date: 20180817
  Receipt Date: 20180817
  Transmission Date: 20190204
  Serious: Yes (Hospitalization)
  Sender: FDA-Public Use
  Company Number: FR-TEVA-2018-FR-942169

PATIENT
  Age: 78 Year
  Sex: Male
  Weight: 90 kg

DRUGS (11)
  1. NAPROXENE [Suspect]
     Active Substance: NAPROXEN
     Indication: SCIATICA
     Dosage: 1100 MILLIGRAM DAILY;
     Route: 048
     Dates: start: 20180507, end: 20180515
  2. OMEPRAZOLE. [Concomitant]
     Active Substance: OMEPRAZOLE
     Route: 048
     Dates: start: 20180515
  3. DIAMICRON 30 MG, COMPRIM? ? LIB?RATION MODIFI?E [Concomitant]
     Indication: TYPE 2 DIABETES MELLITUS
     Dosage: 2 DOSAGE FORMS DAILY;
     Route: 048
     Dates: end: 20180515
  4. FUROSEMIDE. [Concomitant]
     Active Substance: FUROSEMIDE
     Route: 048
     Dates: end: 20180530
  5. KENZEN 8 MG, COMPRIM? S?CABLE [Suspect]
     Active Substance: CANDESARTAN CILEXETIL
     Indication: HYPERTENSION
     Dosage: 1 DOSAGE FORMS DAILY;
     Route: 048
     Dates: end: 20180515
  6. SIMVASTATINE [Concomitant]
     Active Substance: SIMVASTATIN
     Route: 048
  7. KLIPAL CODEINE 600 MG/50 MG, COMPRIM? [Concomitant]
     Active Substance: ACETAMINOPHEN\CODEINE PHOSPHATE
     Indication: SCIATICA
     Route: 048
     Dates: start: 20180507, end: 20180515
  8. KETUM 2,5 POUR CENT, GEL [Suspect]
     Active Substance: KETOPROFEN
     Indication: SCIATICA
     Route: 003
     Dates: end: 20180515
  9. PREVISCAN 20 MG, COMPRIM? S?CABLE [Concomitant]
     Active Substance: FLUINDIONE
     Route: 048
     Dates: end: 20180515
  10. CARDENSIEL 2,5 MG, COMPRIM? PELLICUL? S?CABLE [Concomitant]
     Route: 048
  11. METFORMINE [Concomitant]
     Active Substance: METFORMIN HYDROCHLORIDE
     Dosage: 2550 MILLIGRAM DAILY;
     Route: 048
     Dates: end: 20180515

REACTIONS (1)
  - Acute kidney injury [Recovered/Resolved]

NARRATIVE: CASE EVENT DATE: 20180515
